FAERS Safety Report 14052121 (Version 5)
Quarter: 2018Q2

REPORT INFORMATION
  Report Type: Spontaneous
  Country: US (occurrence: US)
  Receive Date: 20171006
  Receipt Date: 20180524
  Transmission Date: 20180711
  Serious: No
  Sender: FDA-Public Use
  Company Number: US-PFIZER INC-2017430430

PATIENT
  Age: 68 Year
  Sex: Female
  Weight: 71 kg

DRUGS (7)
  1. PROPAFENONE. [Concomitant]
     Active Substance: PROPAFENONE
     Indication: ATRIAL FIBRILLATION
     Dosage: 225 MG, UNK
     Route: 048
  2. PROPAFENONE. [Concomitant]
     Active Substance: PROPAFENONE
     Dosage: UNK, AS NEEDED
     Dates: start: 201706
  3. XGEVA [Concomitant]
     Active Substance: DENOSUMAB
     Indication: BREAST CANCER STAGE IV
     Dosage: UNK, MONTHLY, (1 INJECTION PER MONTH)
     Dates: start: 201609
  4. FASLODEX [Interacting]
     Active Substance: FULVESTRANT
     Indication: BREAST CANCER STAGE IV
     Dosage: UNK, MONTHLY, (2 INJECTION PER MONTH)
     Dates: start: 201701
  5. IBRANCE [Suspect]
     Active Substance: PALBOCICLIB
     Indication: BREAST CANCER STAGE IV
     Dosage: 125 MG, 1X/DAY
     Route: 048
     Dates: start: 20170911, end: 20170923
  6. IBRANCE [Interacting]
     Active Substance: PALBOCICLIB
     Dosage: 125 MG, CYCLIC (DAILY FOR 21 DAYS ON 7DAYS OFF)
     Route: 048
     Dates: start: 201709, end: 201711
  7. IBRANCE [Interacting]
     Active Substance: PALBOCICLIB
     Dosage: 100 MG, CYCLIC (DAILY FOR 21 DAYS ON 7 DAYS OFF)
     Route: 048
     Dates: start: 201711, end: 201802

REACTIONS (6)
  - Neoplasm progression [Unknown]
  - Arthralgia [Recovered/Resolved]
  - Fatigue [Recovered/Resolved]
  - Drug interaction [Recovered/Resolved]
  - Nausea [Recovered/Resolved]
  - Back pain [Unknown]

NARRATIVE: CASE EVENT DATE: 20170917
